FAERS Safety Report 8578588-9 (Version None)
Quarter: 2012Q3

REPORT INFORMATION
  Report Type: 
  Country: None (occurrence: None)
  Receive Date: 20120731
  Receipt Date: 20120731
  Transmission Date: 20120928
  Serious: No
  Sender: FDA-Public Use
  Company Number: None

PATIENT

DRUGS (1)
  1. JANUMET XR [Suspect]
     Dates: end: 20120730

REACTIONS (1)
  - INCORRECT DOSE ADMINISTERED [None]
